FAERS Safety Report 4785296-9 (Version None)
Quarter: 2005Q3

REPORT INFORMATION
  Report Type: 
  Country: None (occurrence: None)
  Receive Date: 20050929
  Receipt Date: 20050916
  Transmission Date: 20060218
  Serious: Yes (Congenital Anomaly)
  Sender: FDA-Public Use
  Company Number: 2005-US-00092

PATIENT
  Sex: Female

DRUGS (1)
  1. FLUOXETINE HCL [Suspect]
     Indication: DEPRESSION
     Dosage: 20MG ALTERNATE DAYS, ORAL
     Route: 048
     Dates: start: 20040628, end: 20050701

REACTIONS (2)
  - DRUG EXPOSURE DURING PREGNANCY [None]
  - PULMONARY VALVE STENOSIS CONGENITAL [None]
